FAERS Safety Report 6993349-X (Version None)
Quarter: 2010Q3

REPORT INFORMATION
  Report Type: 
  Country: None (occurrence: None)
  Receive Date: 20100917
  Receipt Date: 20100629
  Transmission Date: 20110219
  Serious: No
  Sender: FDA-Public Use
  Company Number: US-ASTRAZENECA-2007UW18533

PATIENT
  Age: 464 Month
  Sex: Female
  Weight: 131.1 kg

DRUGS (12)
  1. SEROQUEL [Suspect]
     Route: 048
     Dates: start: 19990420
  2. SEROQUEL [Suspect]
     Route: 048
     Dates: start: 20050301
  3. RISPERDAL [Concomitant]
     Indication: BIPOLAR DISORDER
     Dates: start: 20031001
  4. RISPERDAL [Concomitant]
     Indication: AFFECTIVE DISORDER
     Dates: start: 20031001
  5. ZYPREXA [Concomitant]
     Dates: start: 19991230
  6. ZYPREXA [Concomitant]
     Dates: start: 20040601, end: 20040701
  7. DEPAKOTE [Concomitant]
     Dosage: 500-1500 MG
     Dates: start: 19990420
  8. DEXATRIM [Concomitant]
     Dates: start: 19790101
  9. SYNTHROID [Concomitant]
     Route: 048
     Dates: start: 20000612
  10. SYNTHROID [Concomitant]
     Dates: start: 20080101
  11. TEGRETOL [Concomitant]
     Dates: start: 20090312
  12. ZOCOR [Concomitant]
     Dosage: 20 DAILY
     Dates: start: 20080101

REACTIONS (7)
  - BLOOD TRIGLYCERIDES INCREASED [None]
  - DIABETES MELLITUS [None]
  - DYSLIPIDAEMIA [None]
  - HYPERCHOLESTEROLAEMIA [None]
  - HYPERLIPIDAEMIA [None]
  - TYPE 1 DIABETES MELLITUS [None]
  - TYPE 2 DIABETES MELLITUS [None]
